FAERS Safety Report 8756647 (Version 2)
Quarter: 2012Q4

REPORT INFORMATION
  Report Type: 
  Country: US (occurrence: US)
  Receive Date: 20120828
  Receipt Date: 20120919
  Transmission Date: 20130627
  Serious: Yes (Other)
  Sender: FDA-Public Use
  Company Number: US-JNJFOC-20120812207

PATIENT
  Age: 62 Year
  Sex: Male

DRUGS (7)
  1. REMICADE [Suspect]
     Indication: CROHN^S DISEASE
     Route: 042
     Dates: start: 20120123, end: 20120827
  2. CRESTOR [Concomitant]
     Route: 065
  3. FLECAINIDE ACETATE [Concomitant]
     Route: 065
  4. AMITRIPTYLINE [Concomitant]
     Route: 065
  5. LEVOTHYROXINE [Concomitant]
     Route: 065
  6. METOPROLOL TARTRATE [Concomitant]
     Route: 065
  7. SUMATRIPTAN [Concomitant]
     Route: 065

REACTIONS (3)
  - DNA antibody positive [Unknown]
  - Antinuclear antibody positive [Unknown]
  - Rash [Recovered/Resolved]
